FAERS Safety Report 13058018 (Version 2)
Quarter: 2016Q4

REPORT INFORMATION
  Report Type: Report from Study
  Country: ES (occurrence: ES)
  Receive Date: 20161223
  Receipt Date: 20161229
  Transmission Date: 20170207
  Serious: Yes (Death, Hospitalization)
  Sender: FDA-Public Use
  Company Number: PHHO2014ES014302

PATIENT
  Age: 71 Year
  Sex: Female

DRUGS (4)
  1. CERTICAN [Suspect]
     Active Substance: EVEROLIMUS
     Dosage: 2 MG, BID
     Route: 048
     Dates: start: 20141006, end: 20141203
  2. CERTICAN [Suspect]
     Active Substance: EVEROLIMUS
     Indication: LIVER TRANSPLANT
     Dosage: 2 MG, TID
     Route: 048
     Dates: start: 20140425
  3. ADVAGRAF [Concomitant]
     Active Substance: TACROLIMUS
     Indication: LIVER TRANSPLANT
     Dosage: 1 MG, TID
     Route: 048
     Dates: start: 20140326
  4. ADVAGRAF [Concomitant]
     Active Substance: TACROLIMUS
     Dosage: 1 MG, BID
     Route: 048
     Dates: start: 20141006, end: 20141203

REACTIONS (3)
  - Biliary tract disorder [Recovered/Resolved]
  - Autoimmune hepatitis [Fatal]
  - Cerebral infarction [Fatal]

NARRATIVE: CASE EVENT DATE: 20141023
